FAERS Safety Report 20454630 (Version 2)
Quarter: 2022Q1

REPORT INFORMATION
  Report Type: Other
  Country: IL (occurrence: None)
  Receive Date: 20220210
  Receipt Date: 20220216
  Transmission Date: 20220423
  Serious: No
  Sender: FDA-Public Use
  Company Number: IL-ROCHE-3019607

PATIENT
  Age: 57 Year
  Sex: Female

DRUGS (1)
  1. OCREVUS [Suspect]
     Active Substance: OCRELIZUMAB
     Indication: Relapsing-remitting multiple sclerosis
     Dosage: 600MG Q6M
     Route: 042
     Dates: start: 20210317

REACTIONS (7)
  - Gait disturbance [Recovered/Resolved]
  - SARS-CoV-2 test positive [Recovered/Resolved]
  - Vision blurred [Recovering/Resolving]
  - Lymphocyte count decreased [Not Recovered/Not Resolved]
  - Pain [Recovered/Resolved]
  - Photopsia [Recovering/Resolving]
  - Vitreous floaters [Recovering/Resolving]

NARRATIVE: CASE EVENT DATE: 20220128
